FAERS Safety Report 6186384-5 (Version None)
Quarter: 2009Q2

REPORT INFORMATION
  Report Type: 
  Country: None (occurrence: None)
  Receive Date: 20090511
  Receipt Date: 20090504
  Transmission Date: 20091009
  Serious: No
  Sender: FDA-Public Use
  Company Number: US-BAYER-200714204BCC

PATIENT
  Age: 70 Year
  Sex: Male
  Weight: 74 kg

DRUGS (6)
  1. ALEVE [Suspect]
     Indication: PROSTATIC DISORDER
     Dosage: AS USED: 220 MG  UNIT DOSE: 220 MG
     Route: 048
     Dates: start: 20071212
  2. CEFDINIR [Concomitant]
     Indication: SINUSITIS
  3. GLAUCOMA MEDICATION [Concomitant]
     Indication: GLAUCOMA
  4. CADUET [Concomitant]
     Indication: BLOOD PRESSURE MANAGEMENT
  5. METOPROLOL [Concomitant]
     Indication: BLOOD PRESSURE MANAGEMENT
  6. PROSTATE MEDICATION [Concomitant]
     Indication: PROSTATIC DISORDER

REACTIONS (1)
  - HEART RATE INCREASED [None]
